FAERS Safety Report 6078288-3 (Version None)
Quarter: 2009Q1

REPORT INFORMATION
  Report Type: 
  Country: None (occurrence: None)
  Receive Date: 20090213
  Receipt Date: 20090131
  Transmission Date: 20090719
  Serious: Yes (Other)
  Sender: FDA-Public Use
  Company Number: SE-GENENTECH-276579

PATIENT
  Sex: Female

DRUGS (4)
  1. LUCENTIS [Suspect]
     Indication: MACULAR DEGENERATION
     Dosage: UNK
     Route: 031
     Dates: start: 20081217
  2. ATENOLOL [Concomitant]
     Indication: DRUG USE FOR UNKNOWN INDICATION
  3. SPIRONOLAKTON [Concomitant]
     Indication: DRUG USE FOR UNKNOWN INDICATION
  4. RHINOCORT [Concomitant]
     Indication: DRUG USE FOR UNKNOWN INDICATION

REACTIONS (4)
  - BLOOD PRESSURE INCREASED [None]
  - BLOOD PRESSURE SYSTOLIC INCREASED [None]
  - HEADACHE [None]
  - MUSCULAR WEAKNESS [None]
